FAERS Safety Report 25674974 (Version 1)
Quarter: 2025Q3

REPORT INFORMATION
  Report Type: Spontaneous
  Country: US (occurrence: US)
  Receive Date: 20250813
  Receipt Date: 20250813
  Transmission Date: 20251020
  Serious: No
  Sender: ALEXION PHARMACEUTICALS
  Company Number: US-AstraZeneca-CH-00926827A

PATIENT
  Sex: Female

DRUGS (3)
  1. BRILINTA [Suspect]
     Active Substance: TICAGRELOR
     Dosage: 90 MILLIGRAM, BID
     Route: 065
     Dates: start: 20250514
  2. CRESTOR [Suspect]
     Active Substance: ROSUVASTATIN CALCIUM
     Route: 065
  3. ASPIRIN [Concomitant]
     Active Substance: ASPIRIN
     Route: 065

REACTIONS (10)
  - Skin disorder [Unknown]
  - Intentional dose omission [Unknown]
  - Drug interaction [Unknown]
  - Hypotonia [Unknown]
  - Muscular weakness [Unknown]
  - Fat tissue decreased [Unknown]
  - Contusion [Unknown]
  - Haematoma [Unknown]
  - Impaired healing [Unknown]
  - Muscle disorder [Unknown]
